FAERS Safety Report 5357798-8 (Version None)
Quarter: 2007Q2

REPORT INFORMATION
  Report Type: 
  Country: None (occurrence: None)
  Receive Date: 20070530
  Receipt Date: 20070322
  Transmission Date: 20071010
  Serious: Yes (Other)
  Sender: FDA-Public Use
  Company Number: US200703004663

PATIENT
  Sex: Female

DRUGS (3)
  1. ZYPREXA [Suspect]
     Indication: SCHIZOPHRENIA
     Dosage: 30 MG, ORAL; 5 MG EACH EVENING, ORAL
     Route: 048
  2. ABILIFY [Concomitant]
  3. TOPAMAX [Concomitant]

REACTIONS (2)
  - PRESCRIBED OVERDOSE [None]
  - WEIGHT INCREASED [None]
